FAERS Safety Report 20659677 (Version 2)
Quarter: 2022Q2

REPORT INFORMATION
  Report Type: Report from Study
  Country: FR (occurrence: FR)
  Receive Date: 20220331
  Receipt Date: 20220407
  Transmission Date: 20220721
  Serious: Yes (Life-Threatening, Hospitalization)
  Sender: FDA-Public Use
  Company Number: FR-GLAXOSMITHKLINE-FR2022GSK056523

PATIENT
  Age: 76 Year
  Sex: Female
  Weight: 71 kg

DRUGS (27)
  1. ATEZOLIZUMAB [Suspect]
     Active Substance: ATEZOLIZUMAB
     Indication: Ovarian epithelial cancer
     Dosage: 1200 MG
     Dates: start: 20210730, end: 20210730
  2. DOXORUBICIN [Suspect]
     Active Substance: DOXORUBICIN
     Indication: Ovarian epithelial cancer
     Dosage: 1200 MG
     Dates: start: 20210730, end: 20210730
  3. NIRAPARIB [Suspect]
     Active Substance: NIRAPARIB
     Indication: Ovarian epithelial cancer
     Dosage: 1200 MG
     Dates: start: 20210730, end: 20210730
  4. PLACEBO [Suspect]
     Active Substance: UNSPECIFIED INGREDIENT
     Indication: Ovarian epithelial cancer
     Dosage: 1200 MG
     Dates: start: 20210730, end: 20210730
  5. ATEZOLIZUMAB [Suspect]
     Active Substance: ATEZOLIZUMAB
     Dosage: 1200 MG
     Dates: start: 20220124, end: 20220124
  6. DOXORUBICIN [Suspect]
     Active Substance: DOXORUBICIN
     Dosage: 1200 MG
     Dates: start: 20220124, end: 20220124
  7. NIRAPARIB [Suspect]
     Active Substance: NIRAPARIB
     Dosage: 1200 MG
     Dates: start: 20220124, end: 20220124
  8. PLACEBO [Suspect]
     Active Substance: UNSPECIFIED INGREDIENT
     Dosage: 1200 MG
     Dates: start: 20220124, end: 20220124
  9. ATEZOLIZUMAB [Suspect]
     Active Substance: ATEZOLIZUMAB
     Indication: Ovarian epithelial cancer
     Dosage: 200 MG
     Route: 048
     Dates: start: 20220307, end: 20220326
  10. DOXORUBICIN [Suspect]
     Active Substance: DOXORUBICIN
     Indication: Ovarian epithelial cancer
     Dosage: 200 MG
     Route: 048
     Dates: start: 20220307, end: 20220326
  11. NIRAPARIB [Suspect]
     Active Substance: NIRAPARIB
     Indication: Ovarian epithelial cancer
     Dosage: 200 MG
     Route: 048
     Dates: start: 20220307, end: 20220326
  12. PLACEBO [Suspect]
     Active Substance: UNSPECIFIED INGREDIENT
     Indication: Ovarian epithelial cancer
     Dosage: 200 MG
     Route: 048
     Dates: start: 20220307, end: 20220326
  13. ATEZOLIZUMAB [Suspect]
     Active Substance: ATEZOLIZUMAB
     Dosage: UNK
     Route: 048
     Dates: end: 20220328
  14. DOXORUBICIN [Suspect]
     Active Substance: DOXORUBICIN
     Dosage: UNK
     Route: 048
     Dates: end: 20220328
  15. NIRAPARIB [Suspect]
     Active Substance: NIRAPARIB
     Dosage: UNK
     Route: 048
     Dates: end: 20220328
  16. PLACEBO [Suspect]
     Active Substance: UNSPECIFIED INGREDIENT
     Dosage: UNK
     Route: 048
     Dates: end: 20220328
  17. CARBOPLATIN [Suspect]
     Active Substance: CARBOPLATIN
     Indication: Ovarian epithelial cancer
     Dosage: 380 MG
     Route: 042
     Dates: start: 20210730, end: 20210730
  18. CARBOPLATIN [Suspect]
     Active Substance: CARBOPLATIN
     Dosage: 380 MG
     Route: 042
     Dates: start: 20211227, end: 20211227
  19. DOXORUBICIN HYDROCHLORIDE [Suspect]
     Active Substance: DOXORUBICIN HYDROCHLORIDE
     Indication: Ovarian epithelial cancer
     Dosage: 52 MG
     Route: 042
     Dates: start: 20210730, end: 20210730
  20. DOXORUBICIN HYDROCHLORIDE [Suspect]
     Active Substance: DOXORUBICIN HYDROCHLORIDE
     Dosage: 52 MG
     Route: 042
     Dates: start: 20211227, end: 20211227
  21. URAPIDIL [Concomitant]
     Active Substance: URAPIDIL
     Indication: Hypertension
     Dosage: 60 MG, BID
     Route: 048
     Dates: start: 20220120
  22. NITROGLYCERIN [Concomitant]
     Active Substance: NITROGLYCERIN
     Indication: Hypertension
     Dosage: 10 MG
     Route: 048
     Dates: start: 20220112
  23. DILTIAZEM [Concomitant]
     Active Substance: DILTIAZEM
     Indication: Hypertension
     Dosage: 300 MG
     Route: 048
     Dates: start: 20210927
  24. PERINDOPRIL [Concomitant]
     Active Substance: PERINDOPRIL
     Indication: Hypertension
     Dosage: 10 MG
     Route: 048
     Dates: start: 20210927
  25. LERCANIDIPINE [Concomitant]
     Active Substance: LERCANIDIPINE
     Indication: Hypertension
     Dosage: 10 MG
     Route: 048
     Dates: start: 20210927
  26. LEVOTHYROXINE [Concomitant]
     Active Substance: LEVOTHYROXINE
     Indication: Hypothyroidism
     Dosage: 25 UG
     Route: 048
     Dates: start: 20210729
  27. FUROSEMIDE [Concomitant]
     Active Substance: FUROSEMIDE
     Indication: Hypertension
     Dosage: 20 MG
     Route: 048
     Dates: start: 20220112

REACTIONS (2)
  - Hyponatraemia [Recovered/Resolved]
  - Anaemia [Not Recovered/Not Resolved]

NARRATIVE: CASE EVENT DATE: 20220325
